FAERS Safety Report 4982727-6 (Version None)
Quarter: 2006Q2

REPORT INFORMATION
  Report Type: 
  Country: None (occurrence: None)
  Receive Date: 20060425
  Receipt Date: 20050606
  Transmission Date: 20061013
  Serious: Yes (Hospitalization, Disabling)
  Sender: FDA-Public Use
  Company Number: US-MERCK-0506USA01009

PATIENT
  Age: 52 Year
  Sex: Female
  Weight: 68 kg

DRUGS (1)
  1. VIOXX [Suspect]
     Indication: ARTHRALGIA
     Route: 048
     Dates: start: 19990101, end: 20040101

REACTIONS (9)
  - ADVERSE EVENT [None]
  - BALANCE DISORDER [None]
  - CARDIOVASCULAR DISORDER [None]
  - CEREBROVASCULAR ACCIDENT [None]
  - DEPRESSION [None]
  - ELECTROCARDIOGRAM [None]
  - MEMORY IMPAIRMENT [None]
  - SINUS DISORDER [None]
  - SPEECH DISORDER [None]
